FAERS Safety Report 4554525-9 (Version None)
Quarter: 2005Q1

REPORT INFORMATION
  Report Type: 
  Country: None (occurrence: None)
  Receive Date: 20050114
  Receipt Date: 20031117
  Transmission Date: 20050727
  Serious: Yes (Death, Hospitalization)
  Sender: FDA-Public Use
  Company Number: GXKR2003FR00527

PATIENT
  Age: 36 Year
  Sex: Female

DRUGS (2)
  1. PARACETAMOL (NGX) (PARACETAMOL) [Suspect]
     Dosage: ONCE/SINGLE,
  2. KETOPROFEN (NGX) (KETOPROFEN) [Suspect]
     Dosage: 1.5 G, ONCE/SINGLE,

REACTIONS (9)
  - ANURIA [None]
  - GASTROINTESTINAL ISCHAEMIA [None]
  - HEPATIC FAILURE [None]
  - INTENTIONAL MISUSE [None]
  - INTESTINAL ISCHAEMIA [None]
  - PANCREATITIS NECROTISING [None]
  - SHOCK [None]
  - SYSTEMIC INFLAMMATORY RESPONSE SYNDROME [None]
  - VASOCONSTRICTION [None]
